FAERS Safety Report 8414758-8 (Version None)
Quarter: 2012Q2

REPORT INFORMATION
  Report Type: 
  Country: None (occurrence: None)
  Receive Date: 20120606
  Receipt Date: 20120530
  Transmission Date: 20120825
  Serious: Yes (Other)
  Sender: FDA-Public Use
  Company Number: US-AMGEN-USASP2012033963

PATIENT
  Age: 63 Year
  Sex: Female

DRUGS (5)
  1. CALCIUM [Concomitant]
  2. TYLENOL (CAPLET) [Concomitant]
  3. ALLEGRA-D 12 HOUR [Concomitant]
  4. PROLIA [Suspect]
     Indication: OSTEOPOROSIS POSTMENOPAUSAL
     Dates: start: 20110601
  5. VITAMIN D [Concomitant]

REACTIONS (1)
  - DENTAL EXAMINATION ABNORMAL [None]
